FAERS Safety Report 11734680 (Version 2)
Quarter: 2017Q1

REPORT INFORMATION
  Report Type: Spontaneous
  Country: US (occurrence: US)
  Receive Date: 20151113
  Receipt Date: 20170202
  Transmission Date: 20170428
  Serious: Yes (Other)
  Sender: FDA-Public Use
  Company Number: US-ELI_LILLY_AND_COMPANY-US201511001102

PATIENT
  Sex: Female

DRUGS (2)
  1. CYMBALTA [Suspect]
     Active Substance: DULOXETINE HYDROCHLORIDE
     Indication: PAIN
  2. CYMBALTA [Suspect]
     Active Substance: DULOXETINE HYDROCHLORIDE
     Indication: DEPRESSION
     Dosage: UNK UNK, UNKNOWN
     Route: 065
     Dates: start: 20060809

REACTIONS (26)
  - Paraesthesia [Unknown]
  - Drug withdrawal syndrome [Unknown]
  - Pain [Unknown]
  - Hyperhidrosis [Unknown]
  - Dizziness [Unknown]
  - Vomiting [Unknown]
  - Hypoaesthesia [Unknown]
  - Memory impairment [Unknown]
  - Influenza like illness [Unknown]
  - Nightmare [Unknown]
  - Sleep disorder [Unknown]
  - Nausea [Unknown]
  - Fatigue [Unknown]
  - Anxiety [Unknown]
  - Insomnia [Unknown]
  - Agitation [Unknown]
  - Dysphoria [Unknown]
  - Affect lability [Unknown]
  - Depression [Unknown]
  - Disturbance in attention [Unknown]
  - Tachypnoea [Unknown]
  - Libido decreased [Unknown]
  - Confusional state [Unknown]
  - Suicidal ideation [Unknown]
  - Aggression [Unknown]
  - Palpitations [Unknown]
